FAERS Safety Report 21948860 (Version 2)
Quarter: 2023Q2

REPORT INFORMATION
  Report Type: Spontaneous
  Country: JP (occurrence: JP)
  Receive Date: 20230203
  Receipt Date: 20230518
  Transmission Date: 20230722
  Serious: Yes (Hospitalization, Disabling, Other)
  Sender: FDA-Public Use
  Company Number: JP-ASTELLAS-2023JP001392

PATIENT
  Age: 31 Year
  Sex: Female
  Weight: 46.1 kg

DRUGS (6)
  1. PROGRAF [Suspect]
     Active Substance: TACROLIMUS
     Indication: Rheumatoid arthritis
     Route: 048
     Dates: start: 20220419, end: 20220617
  2. REBAMIPIDE [Concomitant]
     Active Substance: REBAMIPIDE
     Indication: Product used for unknown indication
     Route: 048
     Dates: start: 20200206
  3. AZULFIDINE EN-TABS [Concomitant]
     Active Substance: SULFASALAZINE
     Indication: Product used for unknown indication
     Route: 048
     Dates: start: 20220206
  4. ASPIRIN [Concomitant]
     Active Substance: ASPIRIN
     Indication: Hepatic enzyme increased
     Route: 048
     Dates: start: 20220208, end: 20220611
  5. HEPARIN CALCIUM [Concomitant]
     Active Substance: HEPARIN CALCIUM
     Indication: Hepatic enzyme increased
     Dosage: 10,000 U/DAY, TWICE DAILY
     Route: 058
     Dates: start: 20220215, end: 20220607
  6. CIMZIA [Concomitant]
     Active Substance: CERTOLIZUMAB PEGOL
     Indication: Product used for unknown indication
     Route: 058
     Dates: start: 20220607

REACTIONS (2)
  - Preterm premature rupture of membranes [Unknown]
  - Placental transfusion syndrome [Recovered/Resolved]

NARRATIVE: CASE EVENT DATE: 20220322
